FAERS Safety Report 16291677 (Version 1)
Quarter: 2019Q2

REPORT INFORMATION
  Report Type: Spontaneous
  Country: SG (occurrence: SG)
  Receive Date: 20190509
  Receipt Date: 20190509
  Transmission Date: 20190711
  Serious: Yes (Other)
  Sender: FDA-Public Use
  Company Number: IND-SG-009507513-1905SGP001256

PATIENT
  Age: 53 Year
  Sex: Female

DRUGS (2)
  1. MAXOLON [Suspect]
     Active Substance: METOCLOPRAMIDE HYDROCHLORIDE
     Route: 048
  2. ARCOXIA [Suspect]
     Active Substance: ETORICOXIB

REACTIONS (2)
  - Eye swelling [Unknown]
  - Chest discomfort [Unknown]

NARRATIVE: CASE EVENT DATE: 20181210
